FAERS Safety Report 4440929-1 (Version None)
Quarter: 2004Q3

REPORT INFORMATION
  Report Type: 
  Country: None (occurrence: None)
  Receive Date: 20040728
  Receipt Date: 20040406
  Transmission Date: 20050211
  Serious: No
  Sender: FDA-Public Use
  Company Number: USA040464252

PATIENT
  Age: 47 Year
  Weight: 54 kg

DRUGS (3)
  1. STRATTERA [Suspect]
     Indication: ATTENTION DEFICIT/HYPERACTIVITY DISORDER
     Dosage: 40 MG/1 DAY
     Dates: start: 20040406
  2. ADDERALL 10 [Concomitant]
  3. ZOLOFT [Concomitant]

REACTIONS (2)
  - ANXIETY [None]
  - SOMNOLENCE [None]
